FAERS Safety Report 9529438 (Version 1)
Quarter: 2013Q1

REPORT INFORMATION
  Report Type: Spontaneous
  Country: US (occurrence: None)
  Receive Date: 20130318
  Receipt Date: 20130318
  Transmission Date: 20140127
  Serious: Yes (Hospitalization)
  Sender: FDA-Public Use
  Company Number: 2011SP001813

PATIENT
  Age: 71 Year
  Sex: Male

DRUGS (1)
  1. SYLATRON [Suspect]
     Indication: MALIGNANT MELANOMA
     Route: 058
     Dates: start: 20111115, end: 20111215

REACTIONS (1)
  - Neuropathy peripheral [None]
